FAERS Safety Report 8403476-8 (Version None)
Quarter: 2012Q2

REPORT INFORMATION
  Report Type: 
  Country: None (occurrence: None)
  Receive Date: 20120601
  Receipt Date: 20120522
  Transmission Date: 20120825
  Serious: Yes (Death)
  Sender: FDA-Public Use
  Company Number: US-ELI_LILLY_AND_COMPANY-US201205008189

PATIENT
  Sex: Female

DRUGS (3)
  1. FORTEO [Suspect]
     Indication: OSTEOPOROSIS
     Dosage: 20 UG, QD
     Dates: start: 20120406, end: 20120414
  2. ANTI-DIARRHEAL [Concomitant]
     Indication: DIARRHOEA
     Dosage: UNK
  3. DIURETIC                           /00022001/ [Concomitant]
     Indication: DIURETIC THERAPY
     Dosage: UNK

REACTIONS (3)
  - FEELING ABNORMAL [None]
  - DEATH [None]
  - ABDOMINAL DISCOMFORT [None]
